FAERS Safety Report 24716805 (Version 3)
Quarter: 2025Q4

REPORT INFORMATION
  Report Type: Report from Study
  Country: EU (occurrence: EU)
  Receive Date: 20241210
  Receipt Date: 20251121
  Transmission Date: 20260118
  Serious: Yes (Hospitalization)
  Sender: ROCHE
  Company Number: EU-ROCHE-2166497

PATIENT
  Age: 58 Year
  Sex: Female

DRUGS (8)
  1. OCREVUS [Suspect]
     Active Substance: OCRELIZUMAB
     Indication: Relapsing-remitting multiple sclerosis
     Dosage: SECOND SUBSEQUENT INFUSION OF OCRELIZUMAB ON RECEIVED ON 19/APR/2018
     Route: 042
     Dates: start: 20180405
  2. OCREVUS [Suspect]
     Active Substance: OCRELIZUMAB
     Route: 042
     Dates: start: 2018
  3. OCREVUS [Suspect]
     Active Substance: OCRELIZUMAB
     Dosage: /APR/2020
     Route: 042
     Dates: start: 20190411
  4. OCREVUS [Suspect]
     Active Substance: OCRELIZUMAB
     Dosage: 4TH MAINTENANCE INFUSION
     Route: 042
     Dates: start: 202004
  5. OCREVUS [Suspect]
     Active Substance: OCRELIZUMAB
     Dosage: 5TH MAINTENANCE INFUSION
     Route: 042
     Dates: start: 202010
  6. COMIRNATY [Concomitant]
     Dates: start: 202104
  7. COMIRNATY [Concomitant]
     Dates: start: 202105
  8. METAMIZOLE [Concomitant]
     Active Substance: METAMIZOLE

REACTIONS (5)
  - Headache [Recovered/Resolved]
  - Headache [Recovered/Resolved]
  - Dizziness [Not Recovered/Not Resolved]
  - Vertigo positional [Not Recovered/Not Resolved]
  - Migraine [Recovering/Resolving]

NARRATIVE: CASE EVENT DATE: 20180405
